FAERS Safety Report 10041223 (Version 5)
Quarter: 2016Q2

REPORT INFORMATION
  Report Type: Report from Study
  Country: IN (occurrence: IN)
  Receive Date: 20140327
  Receipt Date: 20160603
  Transmission Date: 20160815
  Serious: Yes (Hospitalization)
  Sender: FDA-Public Use
  Company Number: PHHY2014IN035712

PATIENT
  Age: 69 Year
  Sex: Female
  Weight: 65 kg

DRUGS (1)
  1. ACLASTA [Suspect]
     Active Substance: ZOLEDRONIC ACID
     Indication: OSTEOPOROSIS
     Dosage: 1 DF (5 MG/100 ML/YEAR), Q12MO
     Route: 042
     Dates: start: 20130318, end: 20130318

REACTIONS (10)
  - Gait disturbance [Unknown]
  - Tremor [Unknown]
  - Accident [Unknown]
  - Pain [Unknown]
  - Neurological symptom [Not Recovered/Not Resolved]
  - Arthralgia [Unknown]
  - Head injury [Not Recovered/Not Resolved]
  - Skin disorder [Unknown]
  - Pain in extremity [Not Recovered/Not Resolved]
  - Drug ineffective [Unknown]

NARRATIVE: CASE EVENT DATE: 20160430
